FAERS Safety Report 6946351-8 (Version None)
Quarter: 2010Q3

REPORT INFORMATION
  Report Type: 
  Country: None (occurrence: None)
  Receive Date: 20100827
  Receipt Date: 20100716
  Transmission Date: 20110219
  Serious: Yes (Death, Hospitalization, Other)
  Sender: FDA-Public Use
  Company Number: US-BAXTER-2008BH001614

PATIENT
  Age: 79 Year
  Sex: Female

DRUGS (19)
  1. HEPARIN SODIUM INJECTION [Suspect]
     Indication: THROMBOSIS PROPHYLAXIS
     Route: 042
     Dates: start: 20080102, end: 20080102
  2. HEPARIN SODIUM INJECTION [Suspect]
     Route: 042
     Dates: start: 20080104, end: 20080104
  3. HEPARIN SODIUM INJECTION [Suspect]
     Route: 042
     Dates: start: 20080107, end: 20080107
  4. HEPARIN SODIUM INJECTION [Suspect]
     Route: 042
     Dates: start: 20080109, end: 20080109
  5. HEPARIN SODIUM INJECTION [Suspect]
     Route: 042
     Dates: start: 20080111, end: 20080111
  6. HEPARIN SODIUM INJECTION [Suspect]
     Route: 042
     Dates: start: 20080114, end: 20080114
  7. HEPARIN SODIUM INJECTION [Suspect]
     Route: 042
     Dates: start: 20080118, end: 20080118
  8. HEPARIN SODIUM INJECTION [Suspect]
     Route: 042
     Dates: start: 20080121, end: 20080121
  9. HEPARIN SODIUM INJECTION [Suspect]
     Route: 042
     Dates: start: 20080123, end: 20080123
  10. HEPARIN SODIUM INJECTION [Suspect]
     Route: 042
     Dates: start: 20080125, end: 20080125
  11. HEPARIN SODIUM INJECTION [Suspect]
     Route: 042
     Dates: start: 20080128, end: 20080128
  12. DIATX [Concomitant]
     Indication: PRODUCT USED FOR UNKNOWN INDICATION
     Route: 048
  13. AVAPRO [Concomitant]
     Indication: PRODUCT USED FOR UNKNOWN INDICATION
     Route: 048
  14. PREVACID [Concomitant]
     Indication: PRODUCT USED FOR UNKNOWN INDICATION
     Route: 048
  15. METOPROLOL TARTRATE [Concomitant]
     Indication: PRODUCT USED FOR UNKNOWN INDICATION
     Route: 048
  16. WARFARIN SODIUM [Concomitant]
     Indication: PRODUCT USED FOR UNKNOWN INDICATION
     Route: 048
  17. DIGITEK [Concomitant]
     Indication: PRODUCT USED FOR UNKNOWN INDICATION
     Route: 048
  18. IMODIUM A-D [Concomitant]
     Indication: PRODUCT USED FOR UNKNOWN INDICATION
     Route: 048
  19. IRON [Concomitant]
     Indication: PRODUCT USED FOR UNKNOWN INDICATION
     Route: 065

REACTIONS (19)
  - ARTHRALGIA [None]
  - ARTHRITIS BACTERIAL [None]
  - ASTHENIA [None]
  - BURNING SENSATION [None]
  - CARDIO-RESPIRATORY DISTRESS [None]
  - COAGULOPATHY [None]
  - DEATH [None]
  - DIZZINESS [None]
  - DRY MOUTH [None]
  - ELECTROMECHANICAL DISSOCIATION [None]
  - GINGIVAL BLEEDING [None]
  - HYPOTENSION [None]
  - NAUSEA [None]
  - OEDEMA PERIPHERAL [None]
  - PAIN [None]
  - SEPTIC SHOCK [None]
  - TACHYCARDIA [None]
  - THIRST [None]
  - VOMITING [None]
